FAERS Safety Report 9090456 (Version 1)
Quarter: 2013Q1

REPORT INFORMATION
  Report Type: Report from Study
  Country: US (occurrence: US)
  Receive Date: 20130131
  Receipt Date: 20130131
  Transmission Date: 20140127
  Serious: No
  Sender: FDA-Public Use
  Company Number: US-ABBOTT-12P-163-1022434-00

PATIENT
  Age: 58 Year
  Sex: Male

DRUGS (3)
  1. HUMIRA [Suspect]
     Indication: CROHN^S DISEASE
     Route: 058
     Dates: start: 20121009
  2. UNKNOWN SUPPOSITORY [Concomitant]
     Indication: INFLAMMATION
     Dosage: DAILY
     Route: 054
  3. UNKNOWN SUPPOSITORY [Concomitant]
     Indication: FISTULA

REACTIONS (1)
  - Injection site haemorrhage [Recovered/Resolved]
